FAERS Safety Report 10346566 (Version 1)
Quarter: 2014Q3

REPORT INFORMATION
  Report Type: Spontaneous
  Country: US (occurrence: US)
  Receive Date: 20140729
  Receipt Date: 20140729
  Transmission Date: 20150326
  Serious: Yes (Death, Hospitalization)
  Sender: FDA-Public Use
  Company Number: US-ROCHE-1441934

PATIENT
  Age: 77 Year
  Sex: Male

DRUGS (2)
  1. ZELBORAF [Suspect]
     Active Substance: VEMURAFENIB
     Indication: MALIGNANT MELANOMA
     Route: 048
     Dates: start: 20140619, end: 2014
  2. ZELBORAF [Suspect]
     Active Substance: VEMURAFENIB
     Dosage: DRUG WAS DISCONTINUED
     Route: 048
     Dates: start: 2014

REACTIONS (4)
  - Rash erythematous [Not Recovered/Not Resolved]
  - Skin papilloma [Not Recovered/Not Resolved]
  - Rash [Unknown]
  - Disease progression [Fatal]

NARRATIVE: CASE EVENT DATE: 20140622
